FAERS Safety Report 21126421 (Version 2)
Quarter: 2022Q3

REPORT INFORMATION
  Report Type: Spontaneous
  Country: JP (occurrence: JP)
  Receive Date: 20220725
  Receipt Date: 20220915
  Transmission Date: 20221027
  Serious: Yes (Other)
  Sender: FDA-Public Use
  Company Number: JP-GILEAD-2022-0590301

PATIENT
  Age: 77 Year
  Sex: Female
  Weight: 61.7 kg

DRUGS (14)
  1. VEKLURY [Suspect]
     Active Substance: REMDESIVIR
     Indication: COVID-19
     Dosage: 100 MG, QD
     Route: 041
     Dates: start: 20220711, end: 20220711
  2. VANCOMYCIN HYDROCHLORIDE [Concomitant]
     Active Substance: VANCOMYCIN HYDROCHLORIDE
     Dosage: UNK
     Dates: start: 20220621, end: 20220622
  3. MEROPENEM [Concomitant]
     Active Substance: MEROPENEM
     Dosage: UNK
     Dates: start: 20220621, end: 20220625
  4. SOTROVIMAB [Concomitant]
     Active Substance: SOTROVIMAB
     Dosage: UNK
     Dates: start: 20220708, end: 20220708
  5. EPINASTINE [EPINASTINE HYDROCHLORIDE] [Concomitant]
     Dosage: 20 MG, QD
     Route: 048
  6. LANSOPRAZOLE [Concomitant]
     Active Substance: LANSOPRAZOLE
     Dosage: 30 MG, QD
     Route: 048
  7. ASPIRIN [Concomitant]
     Active Substance: ASPIRIN
     Dosage: 100 MG, QD
     Route: 048
  8. EVOCALCET [Concomitant]
     Active Substance: EVOCALCET
     Dosage: 1 MG, QD
     Route: 048
  9. AMLODIPINE BESYLATE [Concomitant]
     Active Substance: AMLODIPINE BESYLATE
     Dosage: 7.5 MG, QD
     Route: 048
  10. SODIUM FERROUS CITRATE [Concomitant]
     Active Substance: SODIUM FERROUS CITRATE
     Dosage: 100 MG, BID
     Route: 048
  11. DAPRODUSTAT [Concomitant]
     Active Substance: DAPRODUSTAT
     Dosage: 12 MG, QD
     Route: 048
  12. ALFACALCIDOL [Concomitant]
     Active Substance: ALFACALCIDOL
     Indication: Hypocalcaemia
     Dosage: 0.75 UG, QD
     Route: 048
     Dates: start: 20220615
  13. POLARAMINE [Concomitant]
     Active Substance: DEXCHLORPHENIRAMINE MALEATE
     Indication: Erythema
     Dosage: UNK
     Dates: start: 20220708
  14. POLARAMINE [Concomitant]
     Active Substance: DEXCHLORPHENIRAMINE MALEATE
     Indication: Pruritus

REACTIONS (2)
  - Dyspnoea [Recovered/Resolved]
  - Off label use [Recovered/Resolved]

NARRATIVE: CASE EVENT DATE: 20220711
